FAERS Safety Report 5873094-4 (Version None)
Quarter: 2008Q3

REPORT INFORMATION
  Report Type: 
  Country: None (occurrence: None)
  Receive Date: 20080902
  Receipt Date: 20080818
  Transmission Date: 20090109
  Serious: Yes (Hospitalization)
  Sender: FDA-Public Use
  Company Number: SPV1-2008-01735

PATIENT
  Age: 11 Year
  Sex: Male
  Weight: 24.4 kg

DRUGS (2)
  1. ELAPRASE [Suspect]
     Indication: MUCOPOLYSACCHARIDOSIS II
     Dosage: 12.5 MG, 1X/WEEK, IV DRIP
     Route: 041
     Dates: start: 20061212
  2. LAMICTAL [Concomitant]

REACTIONS (3)
  - POOR VENOUS ACCESS [None]
  - TONSILLITIS [None]
  - TOOTH DEVELOPMENT DISORDER [None]
